FAERS Safety Report 16061391 (Version 1)
Quarter: 2019Q2

REPORT INFORMATION
  Report Type: Spontaneous
  Country: US (occurrence: US)
  Receive Date: 20190312
  Receipt Date: 20190312
  Transmission Date: 20190711
  Serious: Yes (Hospitalization)
  Sender: FDA-Public Use
  Company Number: None

PATIENT
  Age: 49 Year
  Sex: Male

DRUGS (13)
  1. TEMAZEPAM 30MG CAPSULES [Concomitant]
     Active Substance: TEMAZEPAM
     Dates: start: 20190219
  2. TESTOSTERONE CYP 200MG/ML [Concomitant]
     Dates: start: 20190202
  3. LEVOTHYROXINE 150 MCG TABLETS [Concomitant]
     Dates: start: 20181011
  4. DICYCLOMINE 20MG TABLETS [Concomitant]
     Dates: start: 20190115
  5. MELOXICAM 15MG TABLETS [Concomitant]
     Dates: start: 20190305
  6. PREDNISONE 10MG TABLETS [Concomitant]
     Active Substance: PREDNISONE
     Dates: start: 20190220
  7. LIALDA 1.2 GRAM TABLETS [Concomitant]
     Dates: start: 20181011
  8. VALACYCLOVIR 500MG TABLETS [Concomitant]
     Active Substance: VALACYCLOVIR HYDROCHLORIDE
     Dates: start: 20190226
  9. ASACOL HD 800 MG TABLETS [Concomitant]
     Dates: start: 20181119
  10. EXEMESTANE 25MG TABLETS [Concomitant]
     Dates: start: 20181228
  11. METHOTREXATE. [Suspect]
     Active Substance: METHOTREXATE
     Indication: RHEUMATOID ARTHRITIS
     Dosage: ?          OTHER FREQUENCY:UNKNOWN;?
  12. BYSTOLIC 10MG TABLETS [Concomitant]
     Dates: start: 20181108
  13. SYNTHROID 200MCG TABLETS [Concomitant]
     Dates: start: 20181222

REACTIONS (1)
  - Adverse drug reaction [None]

NARRATIVE: CASE EVENT DATE: 20190311
